FAERS Safety Report 24168727 (Version 2)
Quarter: 2024Q4

REPORT INFORMATION
  Report Type: Spontaneous
  Country: US (occurrence: US)
  Receive Date: 20240802
  Receipt Date: 20241020
  Transmission Date: 20250114
  Serious: No
  Sender: SANOFI AVENTIS
  Company Number: US-SA-SAC20240731000371

PATIENT
  Age: 72 Year
  Sex: Male

DRUGS (1)
  1. DUPIXENT [Suspect]
     Active Substance: DUPILUMAB
     Indication: Asthma
     Dosage: 300 MG, QOW
     Route: 058

REACTIONS (6)
  - Paranasal sinus discomfort [Unknown]
  - Paranasal sinus hypersecretion [Unknown]
  - Cough [Unknown]
  - Oral herpes [Recovered/Resolved]
  - Surgery [Unknown]
  - Therapeutic response decreased [Unknown]
